FAERS Safety Report 9338592 (Version 1)
Quarter: 2013Q2

REPORT INFORMATION
  Report Type: Report from Study
  Country: SE (occurrence: SE)
  Receive Date: 20130610
  Receipt Date: 20130610
  Transmission Date: 20140414
  Serious: Yes (Hospitalization)
  Sender: FDA-Public Use
  Company Number: SE-JNJFOC-20130601405

PATIENT
  Age: 59 Year
  Sex: Male
  Weight: 84 kg

DRUGS (5)
  1. INFLIXIMAB [Suspect]
     Indication: CROHN^S DISEASE
     Route: 042
     Dates: start: 20080212
  2. HUMIRA [Concomitant]
     Dosage: 40 (UNSPECIFIED)
     Route: 065
     Dates: start: 20080703
  3. FOLACIN [Concomitant]
     Route: 065
  4. VITAMIN B [Concomitant]
     Route: 065
  5. MAGNESIUM [Concomitant]
     Route: 065

REACTIONS (1)
  - Colitis ulcerative [Recovered/Resolved]
